FAERS Safety Report 5938172-X (Version None)
Quarter: 2008Q4

REPORT INFORMATION
  Report Type: 
  Country: None (occurrence: None)
  Receive Date: 20081031
  Receipt Date: 20081029
  Transmission Date: 20090506
  Serious: Yes (Other)
  Sender: FDA-Public Use
  Company Number: US-B.I. PHARMACEUTICALS,INC./RIDGEFIELD-2008-BP-15570BP

PATIENT
  Sex: Female

DRUGS (9)
  1. AGGRENOX [Suspect]
     Indication: TRANSIENT ISCHAEMIC ATTACK
     Dates: end: 20080827
  2. XANAX [Concomitant]
     Dosage: .25MG
  3. ZOLOFT [Concomitant]
     Dosage: 50MG
  4. NORVASC [Concomitant]
     Dosage: 5MG
  5. LOTENSIN [Concomitant]
     Dosage: 20MG
  6. ACTONEL [Concomitant]
  7. ALDACTONE [Concomitant]
     Dosage: 12.5MG
  8. IMDUR [Concomitant]
     Dosage: 15MG
  9. LIPITOR [Concomitant]
     Dosage: 10MG

REACTIONS (1)
  - TRANSIENT ISCHAEMIC ATTACK [None]
